FAERS Safety Report 10993453 (Version 1)
Quarter: 2015Q2

REPORT INFORMATION
  Report Type: Spontaneous
  Country: US (occurrence: US)
  Receive Date: 20150407
  Receipt Date: 20150407
  Transmission Date: 20150821
  Serious: Yes (Life-Threatening, Hospitalization)
  Sender: FDA-Public Use
  Company Number: US-ROCHE-1560553

PATIENT
  Age: 81 Year
  Sex: Female

DRUGS (6)
  1. KLONOPIN [Suspect]
     Active Substance: CLONAZEPAM
     Indication: ANGER
  2. VALIUM [Suspect]
     Active Substance: DIAZEPAM
     Indication: PRODUCT USED FOR UNKNOWN INDICATION
     Route: 065
  3. DILAUDID [Concomitant]
     Active Substance: HYDROMORPHONE HYDROCHLORIDE
  4. KLONOPIN [Suspect]
     Active Substance: CLONAZEPAM
     Indication: ANGER
     Dosage: 1 MG DAILY
     Route: 065
     Dates: start: 2010
  5. KLONOPIN [Suspect]
     Active Substance: CLONAZEPAM
     Indication: NERVOUSNESS
  6. DURAGESIC [Concomitant]
     Active Substance: FENTANYL
     Route: 065

REACTIONS (8)
  - Gait disturbance [Unknown]
  - Malaise [Unknown]
  - Suicidal ideation [Recovered/Resolved]
  - Psychotic behaviour [Recovered/Resolved]
  - Paraesthesia [Recovered/Resolved]
  - Nervousness [Unknown]
  - Withdrawal syndrome [Unknown]
  - Feeling abnormal [Recovered/Resolved]

NARRATIVE: CASE EVENT DATE: 20150402
